FAERS Safety Report 25950915 (Version 4)
Quarter: 2025Q4

REPORT INFORMATION
  Report Type: Spontaneous
  Country: US (occurrence: US)
  Receive Date: 20251023
  Receipt Date: 20251224
  Transmission Date: 20260118
  Serious: No
  Sender: KARYOPHARM THERAPEUTICS
  Company Number: US-KARYOPHARM-2025KPT100839

PATIENT

DRUGS (7)
  1. SELINEXOR [Suspect]
     Active Substance: SELINEXOR
     Indication: Plasma cell myeloma refractory
     Dosage: 80 MG WEEKLY (DAY 1, 8, 15)
     Route: 048
     Dates: start: 20251013, end: 2025
  2. ACYCLOVIR [Concomitant]
     Active Substance: ACYCLOVIR
  3. APREPITANT [Concomitant]
     Active Substance: APREPITANT
  4. ELIQUIS [Concomitant]
     Active Substance: APIXABAN
  5. METOPROLOL SUCCINATE [Concomitant]
     Active Substance: METOPROLOL SUCCINATE
  6. SERTRALINE [Concomitant]
     Active Substance: SERTRALINE HYDROCHLORIDE
  7. SULFAMETHOXAZOLE [Concomitant]
     Active Substance: SULFAMETHOXAZOLE

REACTIONS (2)
  - Plasma cell myeloma [Unknown]
  - Nausea [Not Recovered/Not Resolved]

NARRATIVE: CASE EVENT DATE: 20250101
